FAERS Safety Report 13088288 (Version 18)
Quarter: 2024Q2

REPORT INFORMATION
  Report Type: Report from Study
  Country: BR (occurrence: BR)
  Receive Date: 20170105
  Receipt Date: 20240415
  Transmission Date: 20240715
  Serious: Yes (Other)
  Sender: FDA-Public Use
  Company Number: BR-GLAXOSMITHKLINE-BR2015GSK116142

PATIENT

DRUGS (9)
  1. BELIMUMAB [Suspect]
     Active Substance: BELIMUMAB
     Indication: Systemic lupus erythematosus
     Dosage: 977 MG
     Route: 042
     Dates: start: 20141215
  2. BELIMUMAB [Suspect]
     Active Substance: BELIMUMAB
     Dosage: 900 MG
  3. BELIMUMAB [Suspect]
     Active Substance: BELIMUMAB
     Dosage: 120 MG
  4. BELIMUMAB [Suspect]
     Active Substance: BELIMUMAB
     Dosage: 960 MG, Q4W (8X120MG)
  5. ASTRAZENECA COVID-19 VACCINE [Suspect]
     Active Substance: AZD-1222
     Indication: COVID-19 prophylaxis
     Dosage: UNK
  6. METHOTREXATE [Suspect]
     Active Substance: METHOTREXATE
     Indication: Product used for unknown indication
     Dosage: UNK
  7. PREDNISOLONE [Suspect]
     Active Substance: PREDNISOLONE
     Indication: Product used for unknown indication
     Dosage: 20 MG, Z (1 EVERY 8 HR 3 DAYS, 2 DAYS, 1 EVERY 12 HR, 1/DAY)
     Dates: start: 20220817
  8. BROMAZEPAM [Concomitant]
     Active Substance: BROMAZEPAM
     Indication: Product used for unknown indication
     Dosage: UNK
  9. HYDROXYCHLOROQUINE SULFATE [Concomitant]
     Active Substance: HYDROXYCHLOROQUINE SULFATE
     Indication: Product used for unknown indication
     Dosage: 400 MG, QD

REACTIONS (43)
  - Systemic lupus erythematosus [Recovered/Resolved]
  - Sjogren^s syndrome [Unknown]
  - Neuropathy peripheral [Unknown]
  - Blister [Recovered/Resolved]
  - Hypotension [Recovered/Resolved]
  - Skin disorder [Recovered/Resolved]
  - Skin lesion [Recovered/Resolved]
  - Pain [Recovered/Resolved]
  - Vomiting [Recovered/Resolved]
  - Diarrhoea [Recovered/Resolved]
  - Pruritus [Recovered/Resolved]
  - Pyrexia [Recovered/Resolved]
  - Dizziness [Recovered/Resolved]
  - Swelling [Recovered/Resolved]
  - Ear disorder [Recovered/Resolved]
  - Alopecia [Recovering/Resolving]
  - Influenza [Not Recovered/Not Resolved]
  - Stomatitis [Unknown]
  - Salivary gland enlargement [Unknown]
  - Thyroid mass [Unknown]
  - Hysterectomy [Unknown]
  - Weight decreased [Unknown]
  - Malaise [Unknown]
  - Joint swelling [Unknown]
  - Swelling face [Unknown]
  - Arthritis [Unknown]
  - Headache [Recovered/Resolved]
  - Fatigue [Unknown]
  - Arthralgia [Not Recovered/Not Resolved]
  - Hypokinesia [Unknown]
  - Atrophy [Unknown]
  - Dry mouth [Unknown]
  - Dry eye [Unknown]
  - Oral mucosa atrophy [Unknown]
  - Urinary tract infection [Recovering/Resolving]
  - COVID-19 [Recovered/Resolved]
  - Impaired work ability [Unknown]
  - Coronavirus test positive [Recovered/Resolved]
  - Overdose [Unknown]
  - Circumstance or information capable of leading to medication error [Recovered/Resolved]
  - Product dose omission issue [Recovered/Resolved]
  - Inappropriate schedule of product administration [Recovered/Resolved]
  - Underdose [Unknown]

NARRATIVE: CASE EVENT DATE: 20150913
